FAERS Safety Report 6562632-4 (Version None)
Quarter: 2010Q1

REPORT INFORMATION
  Report Type: 
  Country: None (occurrence: None)
  Receive Date: 20100130
  Receipt Date: 20091118
  Transmission Date: 20100710
  Serious: Yes (Hospitalization)
  Sender: FDA-Public Use
  Company Number: US-ABBOTT-09P-163-0609614-00

PATIENT
  Sex: Male
  Weight: 104.42 kg

DRUGS (10)
  1. HUMIRA [Suspect]
     Indication: RHEUMATOID ARTHRITIS
     Dates: start: 20081201
  2. PLAVIX [Concomitant]
     Indication: CEREBROVASCULAR ACCIDENT
  3. UNKNOWN CHOLESTEROL MEDICATION [Concomitant]
     Indication: BLOOD CHOLESTEROL INCREASED
  4. ASPIRIN [Concomitant]
     Indication: DRUG USE FOR UNKNOWN INDICATION
  5. LISINOPRIL AND HYDROCHLOROTHIAZIDE [Concomitant]
     Indication: HYPERTENSION
  6. VYTORIN [Concomitant]
     Indication: BLOOD CHOLESTEROL INCREASED
  7. ROPINIROLE [Concomitant]
     Indication: RESTLESS LEGS SYNDROME
  8. PREDNISONE [Concomitant]
     Indication: RHEUMATOID ARTHRITIS
  9. ESOMEPRAZOLE MAGNESIUM [Concomitant]
     Indication: PROPHYLAXIS AGAINST GASTROINTESTINAL ULCER
  10. PAIN PILLS [Concomitant]
     Indication: PAIN

REACTIONS (4)
  - ANAEMIA [None]
  - FALL [None]
  - HIP FRACTURE [None]
  - MYALGIA [None]
